FAERS Safety Report 7015424-6 (Version None)
Quarter: 2010Q3

REPORT INFORMATION
  Report Type: 
  Country: None (occurrence: None)
  Receive Date: 20100927
  Receipt Date: 20100921
  Transmission Date: 20110219
  Serious: Yes (Hospitalization)
  Sender: FDA-Public Use
  Company Number: PHHY2010CA48239

PATIENT
  Sex: Female

DRUGS (7)
  1. SANDOSTATIN LAR [Suspect]
     Indication: ACROMEGALY
     Dosage: 20 MG ONCE A MONTH
     Route: 030
     Dates: start: 20050524
  2. CALCIUM [Concomitant]
  3. VITAMIN D [Concomitant]
  4. VITAMIN B-12 [Concomitant]
  5. ALENDRONATE SODIUM [Concomitant]
  6. AMIODARONE HCL [Concomitant]
  7. WARFARIN [Concomitant]

REACTIONS (6)
  - CAST APPLICATION [None]
  - CONTUSION [None]
  - ELBOW OPERATION [None]
  - FALL [None]
  - FATIGUE [None]
  - UPPER LIMB FRACTURE [None]
